FAERS Safety Report 7780246-5 (Version None)
Quarter: 2011Q3

REPORT INFORMATION
  Report Type: 
  Country: None (occurrence: None)
  Receive Date: 20110927
  Receipt Date: 20110620
  Transmission Date: 20111222
  Serious: No
  Sender: FDA-Public Use
  Company Number: US-ASTRAZENECA-2011SE37622

PATIENT
  Sex: Male
  Weight: 119.7 kg

DRUGS (5)
  1. PAXIL [Concomitant]
     Dosage: 1-2 EVERY MORNING
  2. DEPAKOTE [Concomitant]
  3. MELLARIL [Concomitant]
     Dosage: 1-2 AT NIGHT
  4. SEROQUEL XR [Suspect]
     Route: 048
  5. CELEXA [Concomitant]
     Dosage: 1/2 TO 1 EVERY MORNING

REACTIONS (4)
  - DRUG INTOLERANCE [None]
  - IRRITABILITY [None]
  - LIMB DISCOMFORT [None]
  - FLUID RETENTION [None]
